FAERS Safety Report 20585783 (Version 2)
Quarter: 2022Q2

REPORT INFORMATION
  Report Type: Spontaneous
  Country: AR (occurrence: AR)
  Receive Date: 20220312
  Receipt Date: 20220420
  Transmission Date: 20220721
  Serious: Yes (Other)
  Sender: FDA-Public Use
  Company Number: AR-NOVARTISPH-NVSC2022AR058099

PATIENT
  Sex: Female

DRUGS (5)
  1. CALCIUM [Suspect]
     Active Substance: CALCIUM
     Indication: Blood calcium
     Dosage: 4 DOSAGE FORM, QD
     Route: 065
     Dates: start: 19990622
  2. CALCIUM CARBONATE [Suspect]
     Active Substance: CALCIUM CARBONATE
     Indication: Product used for unknown indication
     Dosage: UNK
     Route: 065
  3. VITAMIN D [Concomitant]
     Active Substance: VITAMIN D NOS
     Indication: Product used for unknown indication
     Dosage: UNK
     Route: 065
  4. LEVOTHYROXINE [Concomitant]
     Active Substance: LEVOTHYROXINE
     Indication: Product used for unknown indication
     Dosage: UNK
     Route: 065
  5. DIUREX [Concomitant]
     Indication: Blood calcium abnormal
     Dosage: UNK
     Route: 065

REACTIONS (11)
  - Blood calcium decreased [Unknown]
  - Cataract [Unknown]
  - Thyroid neoplasm [Unknown]
  - Thrombophlebitis migrans [Unknown]
  - Thyroid disorder [Unknown]
  - Drug intolerance [Unknown]
  - Ill-defined disorder [Unknown]
  - Gastric disorder [Unknown]
  - Parathyroid disorder [Unknown]
  - Disturbance in attention [Unknown]
  - Thyroid mass [Unknown]

NARRATIVE: CASE EVENT DATE: 19990101
